FAERS Safety Report 10935162 (Version 1)
Quarter: 2015Q1

REPORT INFORMATION
  Report Type: Spontaneous
  Country: US (occurrence: None)
  Receive Date: 20150129
  Receipt Date: 20150129
  Transmission Date: 20150721
  Serious: No
  Sender: FDA-Public Use
  Company Number: A-NJ2014-103340

PATIENT
  Age: 85 Year
  Sex: Female

DRUGS (2)
  1. URSODIOL (URSODEOXYCHOLIC ACID) [Concomitant]
  2. OPSUMIT [Suspect]
     Active Substance: MACITENTAN
     Indication: CONNECTIVE TISSUE DISORDER
     Route: 048
     Dates: start: 20131108

REACTIONS (1)
  - Pruritus [None]

NARRATIVE: CASE EVENT DATE: 20140729
